FAERS Safety Report 4588262-1 (Version None)
Quarter: 2005Q1

REPORT INFORMATION
  Report Type: 
  Country: None (occurrence: None)
  Receive Date: 20050216
  Receipt Date: 20050208
  Transmission Date: 20050727
  Serious: Yes (Death)
  Sender: FDA-Public Use
  Company Number: GBR-2005-0001539

PATIENT
  Age: 88 Year

DRUGS (5)
  1. MORPHINE SULFATE [Suspect]
     Dosage: 50 MG, DAILY, ORAL
     Route: 048
     Dates: start: 20040419, end: 20040421
  2. FENTANYL [Suspect]
     Dosage: 50 MG, DAILY, TRANSDERMAL
     Route: 062
     Dates: start: 20040419, end: 20040421
  3. NITRODERM [Suspect]
     Dosage: 15 MG, DAILY, SUBCUTANEOUS
     Route: 058
     Dates: start: 20040419, end: 20040421
  4. OMEPRAZOLE [Suspect]
     Dosage: ORAL
     Route: 048
     Dates: start: 20040419, end: 20040421
  5. IBUPROFEN [Suspect]
     Dosage: RECTAL
     Route: 054

REACTIONS (1)
  - ACUTE RESPIRATORY FAILURE [None]
